FAERS Safety Report 8084989-8 (Version None)
Quarter: 2012Q1

REPORT INFORMATION
  Report Type: 
  Country: None (occurrence: None)
  Receive Date: 20120128
  Receipt Date: 20110331
  Transmission Date: 20120608
  Serious: No
  Sender: FDA-Public Use
  Company Number: US-ABBOTT-11P-163-0715792-00

PATIENT
  Age: 44 Year
  Sex: Female

DRUGS (3)
  1. ZYRTEC [Concomitant]
     Indication: PRODUCT USED FOR UNKNOWN INDICATION
  2. NASONEX [Concomitant]
     Indication: PRODUCT USED FOR UNKNOWN INDICATION
     Dosage: SPRAY
  3. HUMIRA [Suspect]
     Indication: RHEUMATOID ARTHRITIS
     Dates: start: 20090101

REACTIONS (3)
  - INJECTION SITE DISCOLOURATION [None]
  - INJECTION SITE HAEMORRHAGE [None]
  - INJECTION SITE NODULE [None]
